FAERS Safety Report 17986831 (Version 10)
Quarter: 2022Q3

REPORT INFORMATION
  Report Type: Report from Study
  Country: US (occurrence: US)
  Receive Date: 20200707
  Receipt Date: 20220926
  Transmission Date: 20221027
  Serious: Yes (Other)
  Sender: FDA-Public Use
  Company Number: US-AEGERION PHARMACEUTICAL, INC-AEGR004903

PATIENT
  Sex: Female

DRUGS (8)
  1. METRELEPTIN [Suspect]
     Active Substance: METRELEPTIN
     Indication: Congenital generalised lipodystrophy
     Dosage: 5 MG, QD
     Route: 058
     Dates: start: 20200529, end: 2020
  2. METRELEPTIN [Suspect]
     Active Substance: METRELEPTIN
     Dosage: 5 MG, QD
     Route: 058
     Dates: start: 2020
  3. GIANVI [Concomitant]
     Active Substance: DROSPIRENONE\ETHINYL ESTRADIOL
     Indication: Product used for unknown indication
     Dosage: UNK
  4. ACTOPLUS MET [Concomitant]
     Active Substance: METFORMIN HYDROCHLORIDE\PIOGLITAZONE HYDROCHLORIDE
     Indication: Product used for unknown indication
     Dosage: UNK, UNK
  5. SPIRONOLACTONE [Concomitant]
     Active Substance: SPIRONOLACTONE
     Indication: Product used for unknown indication
     Dosage: UNK
  6. LOPID [Concomitant]
     Active Substance: GEMFIBROZIL
     Indication: Product used for unknown indication
     Dosage: 600 MG, TABLET
  7. BACTERIOSTATIC WATER [Concomitant]
     Active Substance: WATER
     Indication: Product used for unknown indication
  8. YAZ [Concomitant]
     Active Substance: DROSPIRENONE\ETHINYL ESTRADIOL
     Indication: Prophylaxis
     Dosage: 3 MILLIGRAM, QD
     Route: 048
     Dates: start: 2014

REACTIONS (7)
  - Maternal exposure during pregnancy [Recovered/Resolved]
  - Product dose omission issue [Unknown]
  - Therapy interrupted [Recovered/Resolved]
  - Abortion spontaneous [Recovered/Resolved]
  - Urticaria [Recovered/Resolved]
  - Foot fracture [Recovered/Resolved]
  - Stress [Recovered/Resolved]

NARRATIVE: CASE EVENT DATE: 20200101
